FAERS Safety Report 8000782-6 (Version None)
Quarter: 2011Q4

REPORT INFORMATION
  Report Type: 
  Country: None (occurrence: None)
  Receive Date: 20111219
  Receipt Date: 20111209
  Transmission Date: 20120403
  Serious: Yes (Other)
  Sender: FDA-Public Use
  Company Number: 2011MA017505

PATIENT
  Sex: Male

DRUGS (1)
  1. METOCLOPRAMIDE [Suspect]
     Dates: start: 20000101, end: 20090101

REACTIONS (10)
  - ECONOMIC PROBLEM [None]
  - TARDIVE DYSKINESIA [None]
  - PARALYSIS [None]
  - PARKINSON'S DISEASE [None]
  - INJURY [None]
  - DYSKINESIA [None]
  - EXTRAPYRAMIDAL DISORDER [None]
  - TREMOR [None]
  - EMOTIONAL DISORDER [None]
  - PRE-EXISTING DISEASE [None]
